FAERS Safety Report 6847200-9 (Version None)
Quarter: 2010Q3

REPORT INFORMATION
  Report Type: 
  Country: None (occurrence: None)
  Receive Date: 20100716
  Receipt Date: 20100702
  Transmission Date: 20110219
  Serious: Yes (Other)
  Sender: FDA-Public Use
  Company Number: IT-PAR PHARMACEUTICAL, INC-2010SCPR001156

PATIENT

DRUGS (2)
  1. PROPRANOLOL HYDROCHLORIDE [Suspect]
     Indication: HAEMANGIOMA OF SKIN
     Dosage: 2 MG/KG PER DAY IN 3 DIVIDED DOSES
     Route: 048
  2. PROPRANOLOL HYDROCHLORIDE [Suspect]
     Indication: HAEMANGIOMA OF LIVER
     Dosage: LOWER DOSAGE
     Route: 048

REACTIONS (3)
  - BLOOD KETONE BODY INCREASED [None]
  - HYPOGLYCAEMIC SEIZURE [None]
  - IRRITABILITY [None]
